FAERS Safety Report 4319936-5 (Version None)
Quarter: 2004Q1

REPORT INFORMATION
  Report Type: 
  Country: None (occurrence: None)
  Receive Date: 20040316
  Receipt Date: 20040308
  Transmission Date: 20041129
  Serious: Yes (Death, Hospitalization, Other)
  Sender: FDA-Public Use
  Company Number: FR-JNJFOC-20031204413

PATIENT
  Age: 70 Year
  Sex: Female

DRUGS (3)
  1. DOXORUBICIN HCL [Suspect]
     Indication: OVARIAN CANCER
     Dosage: 95 MG, INTRAVENOUS
     Route: 042
     Dates: start: 20030715, end: 20030922
  2. RADIATION THERAPY (OTHER DIAGNOSTIC AGENTS) [Suspect]
     Indication: OVARIAN CANCER
     Dosage: 95 MG, INTRAVENOUS
     Route: 042
  3. CELECTOL   (CELIPROLOL) TABLETS [Concomitant]

REACTIONS (6)
  - ACUTE GENERALISED EXANTHEMATOUS PUSTULOSIS [None]
  - APHTHOUS STOMATITIS [None]
  - DRUG INEFFECTIVE [None]
  - FIXED ERUPTION [None]
  - RESPIRATORY FAILURE [None]
  - TUBERCULOSIS [None]
